FAERS Safety Report 5204438-4 (Version None)
Quarter: 2007Q1

REPORT INFORMATION
  Report Type: 
  Country: None (occurrence: None)
  Receive Date: 20070110
  Receipt Date: 20060327
  Transmission Date: 20070707
  Serious: No
  Sender: FDA-Public Use
  Company Number: US-BRISTOL-MYERS SQUIBB COMPANY-13327416

PATIENT
  Age: 9 Year
  Sex: Male
  Weight: 52 kg

DRUGS (3)
  1. ABILIFY [Suspect]
     Indication: BIPOLAR DISORDER
     Route: 048
  2. TRILEPTAL [Concomitant]
  3. CONCERTA [Concomitant]

REACTIONS (1)
  - TARDIVE DYSKINESIA [None]
